FAERS Safety Report 23544233 (Version 2)
Quarter: 2024Q1

REPORT INFORMATION
  Report Type: Spontaneous
  Country: FR (occurrence: FR)
  Receive Date: 20240220
  Receipt Date: 20240311
  Transmission Date: 20240410
  Serious: Yes (Life-Threatening, Hospitalization, Other)
  Sender: FDA-Public Use
  Company Number: FR-PFIZER INC-PV202400021560

PATIENT
  Age: 39 Year
  Sex: Female

DRUGS (20)
  1. OXALIPLATIN [Suspect]
     Active Substance: OXALIPLATIN
     Indication: Metastases to ovary
     Dosage: 85 MG/M2, 12 CYCLES
  2. OXALIPLATIN [Suspect]
     Active Substance: OXALIPLATIN
     Indication: Peritoneal disorder
     Dosage: UNK, CYCLIC
     Dates: start: 201801
  3. OXALIPLATIN [Suspect]
     Active Substance: OXALIPLATIN
     Indication: Adenocarcinoma of colon
     Dosage: UNK, CYCLIC
     Dates: start: 201905
  4. OXALIPLATIN [Suspect]
     Active Substance: OXALIPLATIN
     Dosage: 90 MG/M2, IN 150 ML SOLUTION OF 5% DEXTROSE CYCLIC
     Dates: start: 202010
  5. DEXTROSE [Suspect]
     Active Substance: DEXTROSE\DEXTROSE MONOHYDRATE
     Indication: Metastases to ovary
     Dosage: 150 ML, CYCLIC
  6. DEXTROSE [Suspect]
     Active Substance: DEXTROSE\DEXTROSE MONOHYDRATE
     Indication: Peritoneal disorder
  7. DEXTROSE [Suspect]
     Active Substance: DEXTROSE\DEXTROSE MONOHYDRATE
     Indication: Adenocarcinoma of colon
  8. LEUCOVORIN [Concomitant]
     Active Substance: LEUCOVORIN\LEUCOVORIN CALCIUM
     Indication: Metastases to ovary
     Dosage: 12 CYCLES
  9. LEUCOVORIN [Concomitant]
     Active Substance: LEUCOVORIN\LEUCOVORIN CALCIUM
     Indication: Peritoneal disorder
     Dosage: UNK, CYCLIC
     Dates: start: 201706
  10. LEUCOVORIN [Concomitant]
     Active Substance: LEUCOVORIN\LEUCOVORIN CALCIUM
     Indication: Adenocarcinoma of colon
     Dosage: UNK, CYCLIC
     Dates: start: 201801
  11. LEUCOVORIN [Concomitant]
     Active Substance: LEUCOVORIN\LEUCOVORIN CALCIUM
     Dosage: UNK, CYCLIC
     Dates: start: 201905
  12. LEUCOVORIN [Concomitant]
     Active Substance: LEUCOVORIN\LEUCOVORIN CALCIUM
     Dosage: 20 MG/M2, CYCLIC
     Route: 042
     Dates: start: 202010
  13. FLUOROURACIL [Concomitant]
     Active Substance: FLUOROURACIL
     Indication: Metastases to ovary
     Dosage: 12 CYCLES
  14. FLUOROURACIL [Concomitant]
     Active Substance: FLUOROURACIL
     Indication: Peritoneal disorder
     Dosage: UNK, CYCLIC
     Dates: start: 201706
  15. FLUOROURACIL [Concomitant]
     Active Substance: FLUOROURACIL
     Indication: Adenocarcinoma of colon
     Dosage: UNK, CYCLIC
     Dates: start: 201801
  16. FLUOROURACIL [Concomitant]
     Active Substance: FLUOROURACIL
     Dosage: UNK, CYCLIC
     Dates: start: 201905
  17. FLUOROURACIL [Concomitant]
     Active Substance: FLUOROURACIL
     Dosage: 400 MG/M2, CYCLIC
     Dates: start: 202010
  18. IRINOTECAN [Concomitant]
     Active Substance: IRINOTECAN
     Indication: Adenocarcinoma of colon
     Dosage: UNK, CYCLIC
     Dates: start: 201706
  19. CETUXIMAB [Concomitant]
     Active Substance: CETUXIMAB
     Indication: Adenocarcinoma of colon
     Dosage: UNK
     Dates: start: 201706
  20. BEVACIZUMAB [Concomitant]
     Active Substance: BEVACIZUMAB
     Indication: Metastases to ovary
     Dosage: UNK, CYCLIC
     Dates: start: 201801

REACTIONS (1)
  - Immune system disorder [Recovering/Resolving]
